FAERS Safety Report 5846971-8 (Version None)
Quarter: 2008Q3

REPORT INFORMATION
  Report Type: 
  Country: None (occurrence: None)
  Receive Date: 20080815
  Receipt Date: 20080804
  Transmission Date: 20090109
  Serious: Yes (Other)
  Sender: FDA-Public Use
  Company Number: US-PFIZER INC-2008059064

PATIENT
  Sex: Female

DRUGS (8)
  1. CHANTIX [Suspect]
     Indication: SMOKING CESSATION THERAPY
  2. LORAZEPAM [Concomitant]
  3. LIPITOR [Concomitant]
  4. ATENOLOL [Concomitant]
  5. ACETYLSALICYLIC ACID SRT [Concomitant]
  6. LISINOPRIL [Concomitant]
  7. PAROXETINE HCL [Concomitant]
  8. FOLIC ACID [Concomitant]

REACTIONS (7)
  - CATARACT [None]
  - CYST [None]
  - DEPRESSION [None]
  - INSOMNIA [None]
  - MACULAR DEGENERATION [None]
  - SUICIDAL IDEATION [None]
  - VISUAL ACUITY REDUCED [None]
